FAERS Safety Report 6150863-7 (Version None)
Quarter: 2009Q2

REPORT INFORMATION
  Report Type: 
  Country: None (occurrence: None)
  Receive Date: 20090408
  Receipt Date: 20090327
  Transmission Date: 20091009
  Serious: Yes (Life-Threatening, Hospitalization)
  Sender: FDA-Public Use
  Company Number: 2009S1003994

PATIENT
  Age: 51 Year
  Sex: 0
  Weight: 68.0396 kg

DRUGS (11)
  1. METHOTREXATE [Suspect]
     Dosage: 7.5 MG; WEEKLY; ORAL
     Route: 048
     Dates: start: 19890101, end: 20090204
  2. PROFERRIN-FORTE [Concomitant]
  3. COREG [Concomitant]
  4. SYNTHROID [Concomitant]
  5. PREDNISONE TAB [Concomitant]
  6. NEPHROCAPS [Concomitant]
  7. PLAVIX [Concomitant]
  8. ISOSORBIDE [Concomitant]
  9. LASIX [Concomitant]
  10. CALCIUM [Concomitant]
  11. JANUVIA [Concomitant]

REACTIONS (14)
  - ASTHENIA [None]
  - BLISTER [None]
  - DECREASED IMMUNE RESPONSIVENESS [None]
  - DRUG TOXICITY [None]
  - HYPOPHAGIA [None]
  - HYPOTENSION [None]
  - IMPAIRED WORK ABILITY [None]
  - ORAL PAIN [None]
  - OROPHARYNGEAL BLISTERING [None]
  - OROPHARYNGEAL PAIN [None]
  - PANCYTOPENIA [None]
  - PYREXIA [None]
  - STOMATITIS [None]
  - WEIGHT DECREASED [None]
